FAERS Safety Report 7997157-2 (Version None)
Quarter: 2011Q4

REPORT INFORMATION
  Report Type: 
  Country: None (occurrence: None)
  Receive Date: 20111221
  Receipt Date: 20111212
  Transmission Date: 20120403
  Serious: Yes (Hospitalization)
  Sender: FDA-Public Use
  Company Number: DE-JNJFOC-20100501911

PATIENT
  Age: 64 Year
  Sex: Female
  Weight: 44.7 kg

DRUGS (7)
  1. TRABECTEDIN [Suspect]
     Dosage: 1ST CYCLE START DATE
     Route: 042
     Dates: start: 20100316
  2. DEXAMETHASONE [Concomitant]
     Route: 065
     Dates: start: 20100516
  3. DOXORUBICIN HYDROCHLORIDE [Suspect]
     Route: 042
     Dates: start: 20100316
  4. DEXAMETHASONE [Concomitant]
     Route: 042
     Dates: start: 20100316
  5. DOXORUBICIN HYDROCHLORIDE [Suspect]
     Indication: ILL-DEFINED DISORDER
     Route: 042
     Dates: start: 20100507
  6. KEVATRIL [Concomitant]
     Route: 065
     Dates: start: 20100316
  7. TRABECTEDIN [Suspect]
     Indication: OVARIAN CANCER RECURRENT
     Dosage: DOSE: COMBO 1,1 MG/M2CYCLE NUMBER 2
     Route: 042
     Dates: start: 20100407

REACTIONS (1)
  - RHABDOMYOLYSIS [None]
